FAERS Safety Report 5976528-X (Version None)
Quarter: 2008Q4

REPORT INFORMATION
  Report Type: 
  Country: None (occurrence: None)
  Receive Date: 20081125
  Receipt Date: 20081110
  Transmission Date: 20090506
  Serious: Yes (Hospitalization)
  Sender: FDA-Public Use
  Company Number: 2008S1020501

PATIENT
  Age: 62 Year
  Sex: Female

DRUGS (6)
  1. CLOMIPRAMINE HCL [Suspect]
     Indication: DEPRESSION
     Dosage: 75 MG;ONCE;
  2. VENLAFAZINE [Concomitant]
  3. MIRTAZAPINE [Concomitant]
  4. RISPERIDONE [Concomitant]
  5. LORAZEPAM [Concomitant]
  6. INSULIN [Concomitant]

REACTIONS (13)
  - ALANINE AMINOTRANSFERASE INCREASED [None]
  - ASPARTATE AMINOTRANSFERASE INCREASED [None]
  - BLOOD LACTATE DEHYDROGENASE INCREASED [None]
  - CHILLS [None]
  - FIBRIN D DIMER INCREASED [None]
  - HYPERHIDROSIS [None]
  - HYPERTENSION [None]
  - MYOCLONUS [None]
  - NO THERAPEUTIC RESPONSE [None]
  - PROTHROMBIN TIME PROLONGED [None]
  - PYREXIA [None]
  - SINUS TACHYCARDIA [None]
  - TROPONIN I INCREASED [None]
